FAERS Safety Report 18787351 (Version 2)
Quarter: 2021Q1

REPORT INFORMATION
  Report Type: Spontaneous
  Country: US (occurrence: US)
  Receive Date: 20210126
  Receipt Date: 20210210
  Transmission Date: 20210419
  Serious: Yes (Life-Threatening, Hospitalization, Other)
  Sender: FDA-Public Use
  Company Number: US-ADAREPHARM-2021-US-000001

PATIENT
  Age: 63 Year
  Sex: Male

DRUGS (1)
  1. KCL [Suspect]
     Active Substance: POTASSIUM CHLORIDE
     Dosage: OVERDOSE
     Route: 048

REACTIONS (4)
  - Mental status changes [Unknown]
  - Atrial fibrillation [Unknown]
  - Intentional overdose [Unknown]
  - Hyperkalaemia [Recovering/Resolving]
